FAERS Safety Report 12356884 (Version 3)
Quarter: 2016Q3

REPORT INFORMATION
  Report Type: Spontaneous
  Country: US (occurrence: US)
  Receive Date: 20160511
  Receipt Date: 20160728
  Transmission Date: 20161109
  Serious: Yes (Hospitalization)
  Sender: FDA-Public Use
  Company Number: US-PFIZER INC-2016238248

PATIENT
  Age: 54 Year
  Sex: Female

DRUGS (3)
  1. SYNTHROID [Concomitant]
     Active Substance: LEVOTHYROXINE SODIUM
     Dosage: 112 UG, DAILY
  2. NEURONTIN [Suspect]
     Active Substance: GABAPENTIN
     Indication: TRIGEMINAL NEURALGIA
     Dosage: 300 MG, 1X/DAY
     Dates: start: 201604, end: 20160603
  3. MELOXICAM. [Suspect]
     Active Substance: MELOXICAM
     Dosage: 15 MG, 2X/DAY
     Dates: start: 201604, end: 20160426

REACTIONS (8)
  - Product use issue [Recovering/Resolving]
  - Oral disorder [Recovered/Resolved]
  - Swollen tongue [Recovering/Resolving]
  - Oropharyngeal pain [Recovering/Resolving]
  - Bone pain [Recovering/Resolving]
  - Lymphadenopathy [Unknown]
  - Swelling face [Recovering/Resolving]
  - Local swelling [Unknown]

NARRATIVE: CASE EVENT DATE: 201604
